FAERS Safety Report 7242606-0 (Version None)
Quarter: 2011Q1

REPORT INFORMATION
  Report Type: 
  Country: None (occurrence: None)
  Receive Date: 20110125
  Receipt Date: 20110120
  Transmission Date: 20110831
  Serious: Yes (Hospitalization)
  Sender: FDA-Public Use
  Company Number: US-JNJFOC-20110103943

PATIENT
  Age: 30 Year
  Sex: Male

DRUGS (2)
  1. ULTRAM [Suspect]
     Indication: SELF INJURIOUS BEHAVIOUR
     Dosage: 100 TABLETS.
     Route: 048
  2. ETHANOL [Suspect]
     Indication: PRODUCT USED FOR UNKNOWN INDICATION

REACTIONS (3)
  - OVERDOSE [None]
  - SELF INJURIOUS BEHAVIOUR [None]
  - RHABDOMYOLYSIS [None]
